FAERS Safety Report 8046439-7 (Version None)
Quarter: 2012Q1

REPORT INFORMATION
  Report Type: 
  Country: None (occurrence: None)
  Receive Date: 20120113
  Receipt Date: 20120110
  Transmission Date: 20120608
  Serious: Yes (Death, Hospitalization)
  Sender: FDA-Public Use
  Company Number: CA-ABBOTT-12P-028-0890780-00

PATIENT
  Sex: Female
  Weight: 58.112 kg

DRUGS (2)
  1. HUMIRA [Suspect]
     Indication: ANKYLOSING SPONDYLITIS
     Route: 058
     Dates: start: 20111103, end: 20111201
  2. METHOTREXATE [Concomitant]
     Indication: PRODUCT USED FOR UNKNOWN INDICATION
     Route: 058
     Dates: start: 20110721

REACTIONS (4)
  - VASCULITIS [None]
  - HAEMORRHAGIC DISORDER [None]
  - GASTROINTESTINAL HAEMORRHAGE [None]
  - ANTIPHOSPHOLIPID ANTIBODIES POSITIVE [None]
